FAERS Safety Report 8558568-X (Version None)
Quarter: 2012Q3

REPORT INFORMATION
  Report Type: 
  Country: None (occurrence: None)
  Receive Date: 20120801
  Receipt Date: 20120726
  Transmission Date: 20120928
  Serious: Yes (Hospitalization)
  Sender: FDA-Public Use
  Company Number: BE-PFIZER INC-2012182492

PATIENT
  Age: 46 Year
  Sex: Male
  Weight: 99 kg

DRUGS (2)
  1. INSULIN [Concomitant]
     Indication: DIABETES MELLITUS
     Dosage: UNK
     Dates: start: 19740101
  2. GENOTROPIN [Suspect]
     Dosage: 0.4 MG, DAILY, 7INJECTIONS/WEEK
     Route: 058
     Dates: start: 20030718

REACTIONS (1)
  - POLYP COLORECTAL [None]
